FAERS Safety Report 4222185 (Version 2)
Quarter: 2018Q1

REPORT INFORMATION
  Report Type: Spontaneous
  Country: US (occurrence: US)
  Receive Date: 20040923
  Receipt Date: 20180301
  Transmission Date: 20180509
  Serious: Yes (Death, Life-Threatening)
  Sender: FDA-Public Use
  Company Number: US-JNJFOC-20040903664

PATIENT
  Age: 47 Year
  Sex: Male

DRUGS (2)
  1. IMODIUM A-D [Suspect]
     Active Substance: LOPERAMIDE HYDROCHLORIDE
     Route: 048
  2. IMODIUM A-D [Suspect]
     Active Substance: LOPERAMIDE HYDROCHLORIDE
     Indication: CONSTIPATION
     Route: 048

REACTIONS (5)
  - Cardiac arrest [Fatal]
  - Off label use [Unknown]
  - Pulse abnormal [Unknown]
  - Loss of consciousness [Unknown]
  - Product use in unapproved indication [Unknown]
